FAERS Safety Report 8329671-4 (Version None)
Quarter: 2012Q2

REPORT INFORMATION
  Report Type: 
  Country: None (occurrence: None)
  Receive Date: 20120502
  Receipt Date: 20120424
  Transmission Date: 20120825
  Serious: Yes (Disabling)
  Sender: FDA-Public Use
  Company Number: US-GLAXOSMITHKLINE-A0936497A

PATIENT
  Age: 74 Year
  Sex: Female
  Weight: 47.7 kg

DRUGS (3)
  1. LAMOTRIGINE [Suspect]
     Indication: ANTIDEPRESSANT THERAPY
     Dosage: 100MG TWICE PER DAY
     Route: 048
     Dates: start: 20080401, end: 20110601
  2. REQUIP [Concomitant]
  3. ATIVAN [Concomitant]

REACTIONS (2)
  - THERAPEUTIC RESPONSE UNEXPECTED [None]
  - DYSKINESIA [None]
